FAERS Safety Report 19567970 (Version 1)
Quarter: 2021Q3

REPORT INFORMATION
  Report Type: Spontaneous
  Country: US (occurrence: US)
  Receive Date: 20210716
  Receipt Date: 20210716
  Transmission Date: 20211014
  Serious: No
  Sender: FDA-Public Use
  Company Number: US-GLAXOSMITHKLINE-USCH2021045562

PATIENT
  Age: 77 Year
  Sex: Female

DRUGS (1)
  1. VOLTAREN ARTHRITIS PAIN [Suspect]
     Active Substance: DICLOFENAC SODIUM
     Indication: PRODUCT USED FOR UNKNOWN INDICATION
     Dosage: UNK
     Dates: start: 20210529, end: 20210712

REACTIONS (9)
  - Contusion [Unknown]
  - Skin exfoliation [Unknown]
  - Skin discolouration [Unknown]
  - Feeling abnormal [Unknown]
  - Application site erythema [Recovering/Resolving]
  - Incorrect dose administered [Recovering/Resolving]
  - Application site pain [Recovering/Resolving]
  - Discomfort [Unknown]
  - Wrong technique in product usage process [Unknown]
